FAERS Safety Report 5584621-9 (Version None)
Quarter: 2008Q1

REPORT INFORMATION
  Report Type: 
  Country: None (occurrence: None)
  Receive Date: 20080108
  Receipt Date: 20071231
  Transmission Date: 20080703
  Serious: Yes (Other)
  Sender: FDA-Public Use
  Company Number: US-PFIZER INC-2008000424

PATIENT
  Sex: Male
  Weight: 78.181 kg

DRUGS (12)
  1. LIPITOR [Suspect]
     Indication: CARDIOVASCULAR DISORDER
  2. CELEBREX [Interacting]
     Indication: ARTHRITIS
  3. CELEBREX [Interacting]
     Indication: EXOSTOSIS
  4. NORVASC [Concomitant]
  5. ALLERGIN [Concomitant]
  6. IRON [Concomitant]
  7. TRAMADOL HCL [Concomitant]
  8. NITROGLYCERIN [Concomitant]
  9. NITROGLYCERIN [Concomitant]
  10. KLONOPIN [Concomitant]
  11. RESTORIL [Concomitant]
  12. ZETIA [Concomitant]

REACTIONS (8)
  - DIARRHOEA [None]
  - DRUG INTERACTION [None]
  - DRY SKIN [None]
  - EXOSTOSIS [None]
  - FATIGUE [None]
  - PAIN [None]
  - PRINZMETAL ANGINA [None]
  - URTICARIA [None]
